FAERS Safety Report 11942534 (Version 1)
Quarter: 2016Q1

REPORT INFORMATION
  Report Type: Spontaneous
  Country: US (occurrence: US)
  Receive Date: 20160125
  Receipt Date: 20160125
  Transmission Date: 20160526
  Serious: No
  Sender: FDA-Public Use
  Company Number: US-UNITED THERAPEUTICS-UNT-2015-006495

PATIENT
  Sex: Female
  Weight: 63.49 kg

DRUGS (1)
  1. REMODULIN [Suspect]
     Active Substance: TREPROSTINIL
     Indication: PULMONARY HYPERTENSION
     Dosage: 0.048 ?G/KG, CONTINUING
     Route: 041
     Dates: start: 20140821

REACTIONS (4)
  - Musculoskeletal pain [Unknown]
  - Hypoacusis [Unknown]
  - Headache [Unknown]
  - Back pain [Unknown]
